FAERS Safety Report 5918598-0 (Version None)
Quarter: 2008Q4

REPORT INFORMATION
  Report Type: 
  Country: None (occurrence: None)
  Receive Date: 20081015
  Receipt Date: 20081009
  Transmission Date: 20090506
  Serious: Yes (Disabling)
  Sender: FDA-Public Use
  Company Number: NO-ASTRAZENECA-2008SE04738

PATIENT
  Sex: Male

DRUGS (5)
  1. SYMBICORT [Suspect]
     Indication: ASTHMA
     Dosage: 160/4.5 UG MORNING AND EVENING
     Route: 055
     Dates: start: 20030101, end: 20070501
  2. TEOFYLLIN [Suspect]
     Indication: ASTHMA
     Dates: start: 19990101
  3. AIROMIR [Suspect]
     Indication: ASTHMA
     Dosage: 0.1 MG AS NEEDED
     Dates: start: 20070501
  4. VENTOLIN [Suspect]
     Indication: ASTHMA
     Dosage: AS NEEDED
     Dates: start: 20030101, end: 20070501
  5. SERETIDE [Suspect]
     Indication: ASTHMA
     Dosage: 4 INHALATION X 2
     Dates: start: 20070501

REACTIONS (1)
  - EPIDURAL LIPOMATOSIS [None]
